FAERS Safety Report 9079960 (Version 1)
Quarter: 2013Q1

REPORT INFORMATION
  Report Type: Spontaneous
  Country: US (occurrence: US)
  Receive Date: 20130130
  Receipt Date: 20130130
  Transmission Date: 20140127
  Serious: No
  Sender: FDA-Public Use
  Company Number: US-ABBOTT-12P-163-0977454-00

PATIENT
  Sex: Female
  Weight: 81.72 kg

DRUGS (1)
  1. HUMIRA [Suspect]
     Indication: PUSTULAR PSORIASIS
     Dates: start: 201204, end: 201205

REACTIONS (19)
  - Breast cyst [Unknown]
  - Off label use [Unknown]
  - Psoriasis [Recovering/Resolving]
  - Skin discolouration [Recovering/Resolving]
  - Local swelling [Recovering/Resolving]
  - Local swelling [Recovering/Resolving]
  - Pustular psoriasis [Recovering/Resolving]
  - Gait disturbance [Recovering/Resolving]
  - Local swelling [Recovering/Resolving]
  - Rash pustular [Recovering/Resolving]
  - Pruritus [Recovered/Resolved]
  - Stress [Not Recovered/Not Resolved]
  - Insomnia [Not Recovered/Not Resolved]
  - Skin exfoliation [Recovering/Resolving]
  - Skin exfoliation [Recovered/Resolved with Sequelae]
  - Mass [Recovering/Resolving]
  - Alopecia [Recovering/Resolving]
  - Alopecia [Recovering/Resolving]
  - Pain in extremity [Recovering/Resolving]
